FAERS Safety Report 10040283 (Version 2)
Quarter: 2020Q1

REPORT INFORMATION
  Report Type: Spontaneous
  Country: BR (occurrence: BR)
  Receive Date: 20140327
  Receipt Date: 20200204
  Transmission Date: 20200409
  Serious: Yes (Other)
  Sender: FDA-Public Use
  Company Number: BR-AMGEN-BRASP2014021347

PATIENT
  Age: 32 Year
  Sex: Female
  Weight: 98 kg

DRUGS (2)
  1. ARAVA [Concomitant]
     Active Substance: LEFLUNOMIDE
     Indication: RHEUMATOID ARTHRITIS
     Dosage: 20 MG, DAILY (ONE TABLET (20 MG)
  2. ENBREL [Suspect]
     Active Substance: ETANERCEPT
     Indication: RHEUMATOID ARTHRITIS
     Dosage: 50 MILLIGRAM, WEEKLY
     Route: 058
     Dates: start: 201402, end: 201911

REACTIONS (9)
  - Skin discolouration [Unknown]
  - Skin lesion [Unknown]
  - Skin burning sensation [Unknown]
  - Premature menopause [Unknown]
  - Erythema [Unknown]
  - Skin cancer [Unknown]
  - Amenorrhoea [Unknown]
  - Ovarian disorder [Unknown]
  - Pruritus [Unknown]

NARRATIVE: CASE EVENT DATE: 201403
